FAERS Safety Report 17295041 (Version 2)
Quarter: 2020Q1

REPORT INFORMATION
  Report Type: Report from Study
  Country: CA (occurrence: CA)
  Receive Date: 20200121
  Receipt Date: 20200311
  Transmission Date: 20200409
  Serious: Yes (Hospitalization, Other)
  Sender: FDA-Public Use
  Company Number: PHHY2019CA003069

PATIENT
  Sex: Male

DRUGS (1)
  1. REVOLADE [Suspect]
     Active Substance: ELTROMBOPAG
     Indication: IMMUNE THROMBOCYTOPENIC PURPURA
     Dosage: 50 MG, UNK
     Route: 048
     Dates: start: 20181204

REACTIONS (10)
  - Conjunctival hyperaemia [Unknown]
  - Platelet count decreased [Unknown]
  - Eye haemorrhage [Unknown]
  - Constipation [Recovering/Resolving]
  - Platelet count abnormal [Unknown]
  - Fall [Unknown]
  - Platelet count increased [Unknown]
  - Abdominal distension [Not Recovered/Not Resolved]
  - Neuropathy peripheral [Unknown]
  - Localised infection [Unknown]
